FAERS Safety Report 8417457-1 (Version None)
Quarter: 2012Q2

REPORT INFORMATION
  Report Type: 
  Country: None (occurrence: None)
  Receive Date: 20120606
  Receipt Date: 20120529
  Transmission Date: 20120825
  Serious: Yes (Death)
  Sender: FDA-Public Use
  Company Number: GXBR2012US001468

PATIENT
  Sex: Female
  Weight: 48 kg

DRUGS (4)
  1. PREDNISONE TAB [Suspect]
     Dosage: UNK DF, UNK
  2. PROGRAF [Suspect]
     Dosage: 1 MG, QD
  3. AZATHIOPRINE [Suspect]
     Dosage: UNK DF, UNK
  4. PROGRAF [Suspect]
     Indication: LUNG TRANSPLANT
     Dosage: 3 MG, BID
     Route: 048
     Dates: start: 20090604

REACTIONS (1)
  - RENAL FAILURE [None]
